FAERS Safety Report 10469610 (Version 2)
Quarter: 2015Q1

REPORT INFORMATION
  Report Type: Spontaneous
  Country: US (occurrence: US)
  Receive Date: 20140923
  Receipt Date: 20150102
  Transmission Date: 20150720
  Serious: No
  Sender: FDA-Public Use
  Company Number: US-ASTRAZENECA-2014SE69131

PATIENT
  Age: 515 Month
  Sex: Female

DRUGS (3)
  1. SEROQUEL XR [Suspect]
     Active Substance: QUETIAPINE FUMARATE
     Route: 048
     Dates: start: 20140909
  2. SEROQUEL XR [Suspect]
     Active Substance: QUETIAPINE FUMARATE
     Route: 048
  3. SEROQUEL XR [Suspect]
     Active Substance: QUETIAPINE FUMARATE
     Route: 048
     Dates: start: 201408

REACTIONS (2)
  - Stress [Unknown]
  - Tinnitus [Recovered/Resolved]

NARRATIVE: CASE EVENT DATE: 201408
